FAERS Safety Report 10458671 (Version 1)
Quarter: 2014Q3

REPORT INFORMATION
  Report Type: Spontaneous
  Country: JP (occurrence: None)
  Receive Date: 20140915
  Receipt Date: 20140915
  Transmission Date: 20150326
  Serious: Yes (Hospitalization)
  Sender: FDA-Public Use
  Company Number: AXC-2014-000549

PATIENT
  Age: 57 Year
  Sex: Male
  Weight: 81.3 kg

DRUGS (9)
  1. BACTRIM [Suspect]
     Active Substance: SULFAMETHOXAZOLE\TRIMETHOPRIM
     Indication: PNEUMOCYSTIS JIROVECII PNEUMONIA
     Route: 048
     Dates: start: 2012
  2. HOCHUEKKITO [Suspect]
     Active Substance: HERBALS
     Indication: NASOPHARYNGITIS
     Route: 048
     Dates: start: 201208, end: 201208
  3. PREDNISOLONE (PREDNISOLONE) [Suspect]
     Active Substance: PREDNISOLONE
     Indication: DRUG-INDUCED LIVER INJURY
     Dates: start: 2012, end: 2012
  4. METHYLPREDNISOLONE (METHYLPREDNISOLONE) [Suspect]
     Active Substance: METHYLPREDNISOLONE
     Indication: DRUG-INDUCED LIVER INJURY
     Dates: start: 2012, end: 2012
  5. FAMOTIDINE (FAMOTIDINE) [Suspect]
     Active Substance: FAMOTIDINE
     Indication: GASTRITIS
     Route: 048
  6. MOSAPRIDE CITRATE HYDRATE [Suspect]
     Active Substance: MOSAPRIDE CITRATE DIHYDRATE
     Indication: GASTRITIS
     Route: 048
     Dates: start: 201208
  7. OLMESARTAN MEDOXOMIL [Suspect]
     Active Substance: OLMESARTAN MEDOXOMIL
     Indication: HYPERTENSION
     Route: 048
  8. URSODEOXYCHOLIC ACID [Suspect]
     Active Substance: URSODIOL
     Indication: DRUG-INDUCED LIVER INJURY
     Dates: start: 2012
  9. INCHINKOTO [Suspect]
     Active Substance: UNSPECIFIED INGREDIENT
     Indication: DRUG-INDUCED LIVER INJURY
     Dates: start: 2012

REACTIONS (6)
  - Hepatic failure [None]
  - Disease progression [None]
  - Cholecystitis [None]
  - Pneumocystis jirovecii pneumonia [None]
  - Hepatic encephalopathy [None]
  - Rectal ulcer haemorrhage [None]

NARRATIVE: CASE EVENT DATE: 2012
